FAERS Safety Report 4940505-8 (Version None)
Quarter: 2006Q1

REPORT INFORMATION
  Report Type: 
  Country: None (occurrence: None)
  Receive Date: 20060131
  Receipt Date: 20051024
  Transmission Date: 20060701
  Serious: No
  Sender: FDA-Public Use
  Company Number: 200518491US

PATIENT
  Age: 52 Year
  Sex: Female
  Weight: 72 kg

DRUGS (6)
  1. KETEK [Suspect]
     Indication: UPPER RESPIRATORY TRACT INFECTION
     Dosage: 800 MG QD PO
     Route: 048
     Dates: start: 20051022, end: 20051023
  2. MAVIK [Concomitant]
  3. NEXIUM [Concomitant]
  4. VYTORIN [Concomitant]
  5. COUGH SYRUP NOS [Concomitant]
  6. IBUPROFEN [Concomitant]

REACTIONS (6)
  - ASTHENIA [None]
  - DIARRHOEA [None]
  - DIZZINESS [None]
  - VISION BLURRED [None]
  - VISUAL DISTURBANCE [None]
  - VOMITING [None]
